FAERS Safety Report 9396341 (Version 2)
Quarter: 2013Q3

REPORT INFORMATION
  Report Type: Spontaneous
  Country: US (occurrence: US)
  Receive Date: 20130711
  Receipt Date: 20130716
  Transmission Date: 20140515
  Serious: No
  Sender: FDA-Public Use
  Company Number: US-009507513-1307USA005306

PATIENT
  Sex: Female

DRUGS (2)
  1. NEXPLANON [Suspect]
     Indication: CONTRACEPTION
     Dosage: 1 ROD/THREE YEARS
     Route: 059
     Dates: end: 201307
  2. NEXPLANON [Suspect]
     Dosage: UNK
     Route: 059
     Dates: start: 201307

REACTIONS (2)
  - Menstruation irregular [Unknown]
  - Device kink [Recovered/Resolved]
